APPROVED DRUG PRODUCT: IBUPROFEN
Active Ingredient: IBUPROFEN
Strength: 400MG
Dosage Form/Route: TABLET;ORAL
Application: A071268 | Product #002 | TE Code: AB
Applicant: CONTRACT PHARMACAL CORP
Approved: Oct 15, 1986 | RLD: No | RS: No | Type: RX